FAERS Safety Report 17766719 (Version 1)
Quarter: 2020Q2

REPORT INFORMATION
  Report Type: Spontaneous
  Country: IR (occurrence: IR)
  Receive Date: 20200511
  Receipt Date: 20200511
  Transmission Date: 20200714
  Serious: Yes (Other)
  Sender: FDA-Public Use
  Company Number: IR-GLASSHOUSE PHARMACEUTICALS LIMITED CA-2020GLH00009

PATIENT
  Age: 19 Year
  Sex: Female

DRUGS (2)
  1. CLINDAMYCIN. [Suspect]
     Active Substance: CLINDAMYCIN
     Indication: ABORTION INFECTED
     Dosage: 900 MG, 3X/DAY
     Route: 042
  2. GENTAMICIN. [Suspect]
     Active Substance: GENTAMICIN
     Indication: ABORTION INFECTED
     Dosage: 80 MG, 3X/DAY
     Route: 042

REACTIONS (2)
  - Chest pain [Recovered/Resolved]
  - Sinus bradycardia [Recovered/Resolved]
